FAERS Safety Report 15645354 (Version 2)
Quarter: 2018Q4

REPORT INFORMATION
  Report Type: Spontaneous
  Country: SE (occurrence: SE)
  Receive Date: 20181121
  Receipt Date: 20181205
  Transmission Date: 20190205
  Serious: Yes (Other)
  Sender: FDA-Public Use
  Company Number: SE-TAKEDA-2018TUS033359

PATIENT
  Age: 40 Year
  Sex: Female

DRUGS (4)
  1. PENTASA [Concomitant]
     Active Substance: MESALAMINE
     Dosage: UNK
  2. ENTYVIO [Suspect]
     Active Substance: VEDOLIZUMAB
     Indication: CROHN^S DISEASE
     Dosage: UNK
     Route: 065
     Dates: start: 20171121, end: 20180822
  3. IMOVANE [Concomitant]
     Active Substance: ZOPICLONE
     Dosage: UNK
  4. BUVENTOL [Concomitant]
     Dosage: UNK

REACTIONS (2)
  - Respiratory disorder [Unknown]
  - Urinary tract inflammation [Recovering/Resolving]

NARRATIVE: CASE EVENT DATE: 201811
